FAERS Safety Report 8987750 (Version 1)
Quarter: 2012Q4

REPORT INFORMATION
  Report Type: 
  Country: US (occurrence: US)
  Receive Date: 20121227
  Receipt Date: 20121227
  Transmission Date: 20130627
  Serious: Yes (Hospitalization, Other)
  Sender: FDA-Public Use
  Company Number: US-009507513-1212USA007782

PATIENT

DRUGS (7)
  1. FOSAMAX [Suspect]
     Indication: OSTEOPENIA
     Dosage: 70 mg, UNK
     Route: 048
     Dates: start: 200607, end: 200610
  2. ACTONEL [Suspect]
     Indication: OSTEOPENIA
     Dosage: 35 mg, UNK
     Route: 048
     Dates: start: 200403, end: 201003
  3. FOLIC ACID [Concomitant]
     Dosage: 1 mg, UNK
     Dates: start: 2000
  4. CENTRUM (MINERALS (UNSPECIFIED) (+) VITAMINS (UNSPECIFIED)) [Concomitant]
     Dosage: 1 DF, qd
     Dates: start: 2004
  5. PREVACID [Concomitant]
     Indication: GASTROOESOPHAGEAL REFLUX DISEASE
     Dosage: UNK
     Dates: start: 200503, end: 200607
  6. CORTICOSTEROIDS (UNSPECIFIED) [Concomitant]
     Dosage: UNK
     Dates: start: 200411, end: 201003
  7. HORMONES (UNSPECIFIED) [Concomitant]
     Dosage: UNK
     Dates: start: 200408

REACTIONS (16)
  - Intramedullary rod insertion [Unknown]
  - Femur fracture [Unknown]
  - Tooth abscess [Unknown]
  - Adverse event [Unknown]
  - Hypertension [Unknown]
  - Vitamin D deficiency [Unknown]
  - Joint stiffness [Unknown]
  - Joint effusion [Unknown]
  - Synovial cyst [Unknown]
  - Patellofemoral pain syndrome [Unknown]
  - Arthropathy [Unknown]
  - Lacrimation increased [Unknown]
  - Blood albumin decreased [Unknown]
  - Gastrointestinal haemorrhage [Unknown]
  - Pain in jaw [Unknown]
  - Femur fracture [Unknown]
